FAERS Safety Report 20809924 (Version 4)
Quarter: 2022Q4

REPORT INFORMATION
  Report Type: Report from Study
  Country: US (occurrence: US)
  Receive Date: 20220510
  Receipt Date: 20221107
  Transmission Date: 20230113
  Serious: No
  Sender: FDA-Public Use
  Company Number: US-NOVARTISTESTPH-NVSC2022US106482

PATIENT
  Age: 66 Year
  Sex: Male

DRUGS (1)
  1. LEQVIO [Suspect]
     Active Substance: INCLISIRAN SODIUM
     Indication: Product used for unknown indication
     Dosage: UNK
     Route: 058
     Dates: start: 20220418

REACTIONS (4)
  - Injection site pain [Recovered/Resolved]
  - Crepitations [Recovered/Resolved]
  - Tendonitis [Unknown]
  - Liver disorder [Unknown]

NARRATIVE: CASE EVENT DATE: 20220418
